FAERS Safety Report 8211045-8 (Version None)
Quarter: 2012Q1

REPORT INFORMATION
  Report Type: 
  Country: None (occurrence: None)
  Receive Date: 20120315
  Receipt Date: 20120309
  Transmission Date: 20120608
  Serious: Yes (Life-Threatening, Hospitalization)
  Sender: FDA-Public Use
  Company Number: PHHY2012FR020576

PATIENT
  Sex: Female

DRUGS (3)
  1. METHERGINE [Suspect]
     Dosage: 3 DF
     Dates: start: 20111117, end: 20111119
  2. METHERGINE [Suspect]
     Indication: METRORRHAGIA
     Dosage: 1 DF
     Dates: start: 20111115, end: 20111116
  3. JASMINELLE [Concomitant]
     Indication: CONTRACEPTION
     Dosage: 1 DF
     Dates: start: 20111114

REACTIONS (2)
  - CEREBROVASCULAR ACCIDENT [None]
  - HEADACHE [None]
